FAERS Safety Report 25981606 (Version 1)
Quarter: 2025Q4

REPORT INFORMATION
  Report Type: Spontaneous
  Country: US (occurrence: US)
  Receive Date: 20251031
  Receipt Date: 20251031
  Transmission Date: 20260117
  Serious: No
  Sender: BIOGEN
  Company Number: US-BIOGEN-2087972

PATIENT
  Age: 52 Year
  Sex: Male

DRUGS (1)
  1. SKYCLARYS [Suspect]
     Active Substance: OMAVELOXOLONE
     Indication: Friedreich^s ataxia
     Dosage: 50MG, 3 CAPSULES ONCE DAILY, ORAL
     Dates: start: 20230706

REACTIONS (4)
  - Product dose omission issue [Unknown]
  - Vomiting [Unknown]
  - Migraine [Unknown]
  - Blood glucose abnormal [Unknown]

NARRATIVE: CASE EVENT DATE: 20251001
